FAERS Safety Report 4504205-0 (Version None)
Quarter: 2004Q4

REPORT INFORMATION
  Report Type: 
  Country: None (occurrence: None)
  Receive Date: 20041117
  Receipt Date: 20041104
  Transmission Date: 20050328
  Serious: Yes (Other)
  Sender: FDA-Public Use
  Company Number: 2004088145

PATIENT
  Sex: Female
  Weight: 61.2356 kg

DRUGS (3)
  1. LISTERINE (MENTHOL, METHYL SALICYLATE, EUCALYPTOL, THYMOL) [Suspect]
     Indication: DENTAL CARE
     Dosage: UNSPECIFIED AMOUNT ONE-TWO
     Dates: start: 19860101
  2. VICODIN [Concomitant]
  3. METHOCARBAMOL [Concomitant]

REACTIONS (8)
  - ABDOMINAL OPERATION [None]
  - BACK INJURY [None]
  - COUGH [None]
  - FALL [None]
  - ILL-DEFINED DISORDER [None]
  - LAPAROSCOPY [None]
  - NECK INJURY [None]
  - OFF LABEL USE [None]
